FAERS Safety Report 6613057-4 (Version None)
Quarter: 2010Q1

REPORT INFORMATION
  Report Type: 
  Country: None (occurrence: None)
  Receive Date: 20100304
  Receipt Date: 20100302
  Transmission Date: 20100710
  Serious: Yes (Death, Hospitalization)
  Sender: FDA-Public Use
  Company Number: US-BIOGENIDEC-2010BI000746

PATIENT
  Age: 54 Year
  Sex: Female
  Weight: 41 kg

DRUGS (3)
  1. TYSABRI [Suspect]
     Indication: MULTIPLE SCLEROSIS
     Route: 042
  2. TYSABRI [Suspect]
     Route: 042
     Dates: start: 20080903, end: 20091111
  3. SOLU-MEDROL [Concomitant]

REACTIONS (1)
  - GASTROINTESTINAL VIRAL INFECTION [None]
